FAERS Safety Report 4677554-3 (Version None)
Quarter: 2005Q2

REPORT INFORMATION
  Report Type: 
  Country: None (occurrence: None)
  Receive Date: 20050526
  Receipt Date: 20050526
  Transmission Date: 20051028
  Serious: Yes (Hospitalization)
  Sender: FDA-Public Use
  Company Number: None

PATIENT
  Age: 41 Year
  Sex: Female
  Weight: 78.6 kg

DRUGS (8)
  1. EPOGEN [Suspect]
     Indication: DIALYSIS
     Dosage: 2000 UNITS    MWF    INTRAVENOU
     Route: 042
     Dates: start: 20050301, end: 20050312
  2. ASPIRIN [Concomitant]
  3. LOPRESSOR [Concomitant]
  4. LORTAB [Concomitant]
  5. NEPHROCAPS [Concomitant]
  6. PHOSLO [Concomitant]
  7. PROTONIX [Concomitant]
  8. PREDNISONE TAB [Concomitant]

REACTIONS (2)
  - CEREBROVASCULAR ACCIDENT [None]
  - POLYCYTHAEMIA [None]
